FAERS Safety Report 17066877 (Version 8)
Quarter: 2020Q2

REPORT INFORMATION
  Report Type: Spontaneous
  Country: US (occurrence: US)
  Receive Date: 20191122
  Receipt Date: 20200428
  Transmission Date: 20200713
  Serious: Yes (Other)
  Sender: FDA-Public Use
  Company Number: US-PFIZER INC-2018408777

PATIENT
  Age: 77 Year
  Sex: Female
  Weight: 95 kg

DRUGS (2)
  1. ARTHROTEC [Suspect]
     Active Substance: DICLOFENAC SODIUM\MISOPROSTOL
     Dosage: 2 DF, DAILY (2 TABLETS, DAILY [I THINK IT^S 50 MG PER PILL AND IT^S 2 PILLS A DAY])
  2. ARTHROTEC [Suspect]
     Active Substance: DICLOFENAC SODIUM\MISOPROSTOL
     Indication: COSTOCHONDRITIS
     Dosage: UNK, 2X/DAY (1 TABLET IS 50 MG DICLOFENAC SODIUM, 200 MCG MISOPROSTOL)
     Route: 048
     Dates: start: 2016

REACTIONS (8)
  - Seizure [Unknown]
  - Product use in unapproved indication [Unknown]
  - Amnesia [Unknown]
  - Dyspnoea [Unknown]
  - Heart rate irregular [Unknown]
  - Frustration tolerance decreased [Unknown]
  - Off label use [Unknown]
  - Movement disorder [Unknown]

NARRATIVE: CASE EVENT DATE: 201909
